FAERS Safety Report 20581264 (Version 12)
Quarter: 2022Q4

REPORT INFORMATION
  Report Type: Spontaneous
  Country: CA (occurrence: CA)
  Receive Date: 20220311
  Receipt Date: 20221129
  Transmission Date: 20230113
  Serious: Yes (Other)
  Sender: FDA-Public Use
  Company Number: CA-CELLTRION INC.-2021CA018281

PATIENT

DRUGS (19)
  1. INFLECTRA [Suspect]
     Active Substance: INFLIXIMAB-DYYB
     Indication: Colitis ulcerative
     Dosage: 10 MG/KG, WEEK- 0 RECEIVED IN HOSPITAL
     Route: 042
     Dates: start: 20211117, end: 20211117
  2. INFLECTRA [Suspect]
     Active Substance: INFLIXIMAB-DYYB
     Dosage: 700 MG, 2,6 WEEKS, THEN EVERY 8 WEEKS
     Route: 042
     Dates: start: 20211201, end: 20211227
  3. INFLECTRA [Suspect]
     Active Substance: INFLIXIMAB-DYYB
     Dosage: 700 MG, 2,6 WEEKS, THEN EVERY 8 WEEKS
     Route: 042
     Dates: start: 20211227
  4. INFLECTRA [Suspect]
     Active Substance: INFLIXIMAB-DYYB
     Dosage: 10 MG/KG, (10 MG/KG OF INFLIXIMAB MONOTHERAPY BACK IN JANUARY 2022)
     Route: 042
     Dates: start: 202201
  5. INFLECTRA [Suspect]
     Active Substance: INFLIXIMAB-DYYB
     Dosage: 700 MG, EVERY 6 WEEKS
     Route: 042
     Dates: start: 20220211, end: 20220211
  6. INFLECTRA [Suspect]
     Active Substance: INFLIXIMAB-DYYB
     Dosage: 700 MG INDUCTION AT Q 0 , 2, 6 WEEK THEN EVERY 4 WEEKS
     Route: 042
     Dates: start: 20220304
  7. INFLECTRA [Suspect]
     Active Substance: INFLIXIMAB-DYYB
     Dosage: 700 MG INDUCTION AT Q 0 , 2, 6 WEEK THEN EVERY 4 WEEKS
     Route: 042
     Dates: start: 20220401
  8. INFLECTRA [Suspect]
     Active Substance: INFLIXIMAB-DYYB
     Dosage: 700 MG INDUCTION AT Q 0 , 2, 6 WEEK THEN EVERY 4 WEEKS
     Route: 042
     Dates: start: 20220429
  9. INFLECTRA [Suspect]
     Active Substance: INFLIXIMAB-DYYB
     Dosage: 700 MG INDUCTION AT Q 0 , 2, 6 WEEK THEN EVERY 4 WEEKS
     Route: 042
     Dates: start: 20220527
  10. INFLECTRA [Suspect]
     Active Substance: INFLIXIMAB-DYYB
     Dosage: 700 MG INDUCTION AT Q 0 , 2, 6 WEEK THEN EVERY 4 WEEKS
     Route: 042
     Dates: start: 20220622
  11. INFLECTRA [Suspect]
     Active Substance: INFLIXIMAB-DYYB
     Dosage: 700 MG INDUCTION AT Q 0 , 2, 6 WEEK THEN EVERY 4 WEEKS
     Route: 042
     Dates: start: 20220720
  12. INFLECTRA [Suspect]
     Active Substance: INFLIXIMAB-DYYB
     Dosage: 700 MG INDUCTION AT Q 0 , 2, 6 WEEK THEN EVERY 4 WEEKS
     Route: 042
     Dates: start: 20220819
  13. INFLECTRA [Suspect]
     Active Substance: INFLIXIMAB-DYYB
     Dosage: 700 MG INDUCTION AT Q 0 , 2, 6 WEEK THEN EVERY 4 WEEKS
     Route: 042
     Dates: start: 20220919
  14. INFLECTRA [Suspect]
     Active Substance: INFLIXIMAB-DYYB
     Dosage: 700 MG INDUCTION AT Q 0 , 2, 6 WEEK THEN EVERY 4 WEEKS
     Route: 042
     Dates: start: 20221021
  15. INFLECTRA [Suspect]
     Active Substance: INFLIXIMAB-DYYB
     Dosage: 700 MG INDUCTION AT Q 0 , 2, 6 WEEK THEN EVERY 4 WEEKS
     Route: 042
     Dates: start: 20221118
  16. AZATHIOPRINE [Concomitant]
     Active Substance: AZATHIOPRINE
     Dosage: 50 MG
  17. AZATHIOPRINE [Concomitant]
     Active Substance: AZATHIOPRINE
     Dosage: 1 DF DOSAGE INFO: UNKNOWN
     Route: 065
     Dates: start: 202202
  18. PREDNISONE [Concomitant]
     Active Substance: PREDNISONE
     Dosage: 40 MG, UNKNOWN FREQUENCY
     Route: 065
     Dates: start: 202111
  19. PREDNISONE [Concomitant]
     Active Substance: PREDNISONE
     Dosage: 20 MG (DAILY AND I HAVE ASKED HIM TO START TAPERING BY 5 MG WEEKLY UNTIL 0 )

REACTIONS (16)
  - Rectal haemorrhage [Unknown]
  - Condition aggravated [Recovered/Resolved]
  - Therapeutic response shortened [Unknown]
  - Off label use [Unknown]
  - Off label use [Unknown]
  - Off label use [Unknown]
  - Intentional product use issue [Unknown]
  - Drug level decreased [Unknown]
  - Exfoliative rash [Unknown]
  - Drug level below therapeutic [Unknown]
  - Rash erythematous [Unknown]
  - C-reactive protein increased [Recovered/Resolved]
  - Anaemia [Unknown]
  - Weight decreased [Recovering/Resolving]
  - Drug level above therapeutic [Not Recovered/Not Resolved]
  - Condition aggravated [Recovered/Resolved]

NARRATIVE: CASE EVENT DATE: 20211117
